FAERS Safety Report 21466753 (Version 1)
Quarter: 2022Q4

REPORT INFORMATION
  Report Type: Spontaneous
  Country: US (occurrence: None)
  Receive Date: 20221014
  Receipt Date: 20221014
  Transmission Date: 20230113
  Serious: Yes (Death)
  Sender: FDA-Public Use
  Company Number: None

PATIENT
  Age: 95 Year
  Sex: Female
  Weight: 51.71 kg

DRUGS (11)
  1. MYLERAN [Suspect]
     Active Substance: BUSULFAN
     Indication: Myeloproliferative neoplasm
     Dosage: 2 MG EVERY WEEK ORAL?
     Route: 048
  2. MYLERAN [Suspect]
     Active Substance: BUSULFAN
     Indication: Chronic disease
  3. ACETAMINOPHEN [Concomitant]
     Active Substance: ACETAMINOPHEN
  4. AMLODIPINE [Concomitant]
     Active Substance: AMLODIPINE BESYLATE
  5. ASPIRIN [Concomitant]
     Active Substance: ASPIRIN
  6. ATENOLOL [Concomitant]
     Active Substance: ATENOLOL
  7. ESCITALOPRAM [Concomitant]
     Active Substance: ESCITALOPRAM OXALATE
  8. LORAZEPAM [Concomitant]
     Active Substance: LORAZEPAM
  9. LEVOTHYROXINE [Concomitant]
     Active Substance: LEVOTHYROXINE
  10. LUMIGAN [Concomitant]
     Active Substance: BIMATOPROST
  11. RISPERIDONE [Concomitant]
     Active Substance: RISPERIDONE

REACTIONS (1)
  - Death [None]

NARRATIVE: CASE EVENT DATE: 20220929
